FAERS Safety Report 11014592 (Version 2)
Quarter: 2015Q2

REPORT INFORMATION
  Report Type: Spontaneous
  Country: US (occurrence: US)
  Receive Date: 20150412
  Receipt Date: 20150525
  Transmission Date: 20150821
  Serious: No
  Sender: FDA-Public Use
  Company Number: US-JNJFOC-20130809653

PATIENT
  Sex: Female
  Weight: 61.24 kg

DRUGS (5)
  1. PREMPRO [Concomitant]
     Active Substance: ESTROGENS, CONJUGATED\MEDROXYPROGESTERONE ACETATE
     Indication: HORMONE REPLACEMENT THERAPY
     Dosage: SMALLEST DOSE ONCE A DAY
     Route: 065
     Dates: start: 2013
  2. LYRICA [Concomitant]
     Active Substance: PREGABALIN
     Indication: PAIN
     Dosage: SMALLEST DOSE ONCE AT NIGHT
     Route: 048
     Dates: start: 2013
  3. AMBIEN [Concomitant]
     Active Substance: ZOLPIDEM TARTRATE
     Indication: SLEEP DISORDER THERAPY
     Dosage: SMALLEST DOSE ONCE AT NIGHT
     Route: 048
     Dates: start: 201301
  4. CYMBALTA [Concomitant]
     Active Substance: DULOXETINE HYDROCHLORIDE
     Indication: DEPRESSION
     Dosage: SMALLEST DOSE ONE IN THE MORNING
     Route: 048
     Dates: start: 201212
  5. TRAMADOL [Suspect]
     Active Substance: TRAMADOL
     Indication: PAIN
     Dosage: SMALLEST DOSE 2 TIMES A DAY.
     Route: 065
     Dates: start: 2013, end: 2013

REACTIONS (1)
  - Constipation [Unknown]
